FAERS Safety Report 6109267-5 (Version None)
Quarter: 2009Q1

REPORT INFORMATION
  Report Type: 
  Country: None (occurrence: None)
  Receive Date: 20090306
  Receipt Date: 20090306
  Transmission Date: 20090719
  Serious: Yes (Hospitalization)
  Sender: FDA-Public Use
  Company Number: None

PATIENT
  Sex: Female
  Weight: 85 kg

DRUGS (4)
  1. CISPLATIN [Suspect]
     Dosage: 89 MG
  2. DOXORUBICIN HCL [Suspect]
     Dosage: 80 MG
  3. TAXOL [Suspect]
     Dosage: 283 MG
  4. NEULASTA [Suspect]
     Dosage: 6 MG

REACTIONS (11)
  - ANAEMIA [None]
  - ANOREXIA [None]
  - FEBRILE NEUTROPENIA [None]
  - HEART RATE INCREASED [None]
  - HYPOKALAEMIA [None]
  - HYPOMAGNESAEMIA [None]
  - PRODUCTIVE COUGH [None]
  - PULMONARY CONGESTION [None]
  - RESPIRATORY RATE INCREASED [None]
  - THROMBOCYTOPENIA [None]
  - WHEEZING [None]
